FAERS Safety Report 17920074 (Version 2)
Quarter: 2020Q2

REPORT INFORMATION
  Report Type: Spontaneous
  Country: JP (occurrence: JP)
  Receive Date: 20200620
  Receipt Date: 20200629
  Transmission Date: 20200714
  Serious: Yes (Hospitalization, Other)
  Sender: FDA-Public Use
  Company Number: JP-AMGEN-JPNSP2020097200

PATIENT
  Age: 82 Year
  Sex: Female
  Weight: 47.3 kg

DRUGS (24)
  1. PARSABIV [Suspect]
     Active Substance: ETELCALCETIDE HYDROCHLORIDE
     Dosage: 2.5 MILLIGRAM, 3 TIMES/WK
     Route: 010
     Dates: start: 20181115, end: 20181218
  2. OXAROL [Concomitant]
     Active Substance: MAXACALCITOL
     Dosage: 5 MICROGRAM, 3 TIMES/WK
     Route: 065
     Dates: start: 20180619, end: 20190421
  3. DARBEPOETIN ALFA [Concomitant]
     Active Substance: DARBEPOETIN ALFA
     Dosage: 30 MUG, QW
     Route: 065
     Dates: start: 20191107, end: 20200102
  4. PARSABIV [Suspect]
     Active Substance: ETELCALCETIDE HYDROCHLORIDE
     Indication: HYPERPARATHYROIDISM SECONDARY
     Dosage: 5 MILLIGRAM, 3 TIMES/WK
     Route: 010
     Dates: start: 20181024, end: 20181113
  5. TANKARU [Concomitant]
     Dosage: 1500 MG, EVERYDAY
     Route: 048
     Dates: start: 20181112
  6. EPOETIN ALFA [Concomitant]
     Active Substance: ERYTHROPOIETIN
     Dosage: 4500 IU, QW
     Route: 065
     Dates: end: 20190122
  7. PARSABIV [Suspect]
     Active Substance: ETELCALCETIDE HYDROCHLORIDE
     Dosage: 2.5 MILLIGRAM, 2 TIMES/WK
     Route: 010
     Dates: start: 20181220, end: 20200222
  8. PARSABIV [Suspect]
     Active Substance: ETELCALCETIDE HYDROCHLORIDE
     Dosage: 2.5 MILLIGRAM, QWK
     Route: 010
     Dates: start: 20200225, end: 20200407
  9. OXAROL [Concomitant]
     Active Substance: MAXACALCITOL
     Dosage: 5 UG, Q56H
     Route: 065
     Dates: start: 20180619, end: 20190421
  10. MAXACALCITOL [Concomitant]
     Active Substance: MAXACALCITOL
     Dosage: 2.5 MICROGRAM, 2 TIMES/WK
     Route: 065
     Dates: start: 20190813, end: 20200407
  11. EPOETIN ALFA [Concomitant]
     Active Substance: ERYTHROPOIETIN
     Dosage: 6000 IU, QW
     Route: 065
     Dates: start: 20190124, end: 20190219
  12. NESP [Concomitant]
     Active Substance: DARBEPOETIN ALFA
     Dosage: 60 UG, QW
     Route: 065
     Dates: start: 20190221, end: 20190328
  13. MAXACALCITOL [Concomitant]
     Active Substance: MAXACALCITOL
     Dosage: 2.5 MICROGRAM, 3 TIMES/WK
     Route: 065
     Dates: start: 20190704, end: 20190810
  14. MAXACALCITOL [Concomitant]
     Active Substance: MAXACALCITOL
     Dosage: 2.5 UG, Q84H
     Route: 065
     Dates: start: 20190813, end: 20200407
  15. DARBEPOETIN ALFA [Concomitant]
     Active Substance: DARBEPOETIN ALFA
     Dosage: 20 MUG, QW
     Route: 065
     Dates: start: 20190808, end: 20191031
  16. MAXACALCITOL [Concomitant]
     Active Substance: MAXACALCITOL
     Dosage: 2.5 UG, Q56H
     Route: 065
     Dates: start: 20190704, end: 20190810
  17. FESIN [Concomitant]
     Dosage: 40 MG, QW
     Route: 042
     Dates: start: 20200305, end: 20200409
  18. NESP [Concomitant]
     Active Substance: DARBEPOETIN ALFA
     Dosage: 40 UG, QW
     Route: 065
     Dates: start: 20190404, end: 20190502
  19. DARBEPOETIN ALFA [Concomitant]
     Active Substance: DARBEPOETIN ALFA
     Dosage: 40 MUG, QW
     Route: 065
     Dates: start: 20200109, end: 20200416
  20. DARBEPOETIN ALFA [Concomitant]
     Active Substance: DARBEPOETIN ALFA
     Dosage: 30 MUG, QW
     Route: 065
     Dates: start: 20200430
  21. OXAROL [Concomitant]
     Active Substance: MAXACALCITOL
     Dosage: 2.5 UG, Q56H
     Route: 065
     Dates: start: 20190423, end: 20190702
  22. NESP [Concomitant]
     Active Substance: DARBEPOETIN ALFA
     Dosage: 30 UG, QW
     Route: 065
     Dates: start: 20190509, end: 20190530
  23. NESP [Concomitant]
     Active Substance: DARBEPOETIN ALFA
     Dosage: 20 UG, QW
     Route: 065
     Dates: start: 20190606, end: 20190801
  24. OXAROL [Concomitant]
     Active Substance: MAXACALCITOL
     Dosage: 2.5 MICROGRAM, 3 TIMES/WK
     Route: 065
     Dates: start: 20190423, end: 20190702

REACTIONS (5)
  - Shunt stenosis [Recovered/Resolved]
  - Shunt stenosis [Recovered/Resolved]
  - Dementia [Recovering/Resolving]
  - Shunt stenosis [Recovered/Resolved]
  - Pneumonia [Recovered/Resolved]

NARRATIVE: CASE EVENT DATE: 20181102
